FAERS Safety Report 6539325-2 (Version None)
Quarter: 2010Q1

REPORT INFORMATION
  Report Type: 
  Country: None (occurrence: None)
  Receive Date: 20100115
  Receipt Date: 20100107
  Transmission Date: 20100710
  Serious: Yes (Other)
  Sender: FDA-Public Use
  Company Number: US-SANOFI-AVENTIS-2009SA007831

PATIENT
  Age: 61 Year
  Sex: Female
  Weight: 113.39 kg

DRUGS (15)
  1. LANTUS [Suspect]
     Indication: TYPE 2 DIABETES MELLITUS
     Dosage: DOSE:48 UNIT(S)
     Route: 058
     Dates: start: 20070718
  2. LANTUS [Suspect]
     Dosage: DOSE:40 UNIT(S)
     Route: 058
     Dates: start: 20090501
  3. OPTICLICK [Suspect]
     Dates: start: 20070718
  4. ASPIRIN [Concomitant]
     Dates: start: 20021101
  5. QUINAPRIL [Concomitant]
     Indication: BLOOD PRESSURE
     Dosage: 10 MG INCREASED TO 20 MG
  6. METFORMIN HYDROCHLORIDE [Concomitant]
  7. METOPROLOL [Concomitant]
     Dates: start: 20080711
  8. CENTRUM SILVER [Concomitant]
     Indication: VITAMIN SUPPLEMENTATION
     Dosage: 1 DAILY
  9. PLAVIX [Concomitant]
     Dates: start: 20080816
  10. SIMVASTATIN [Concomitant]
     Dates: start: 20070701
  11. ZETIA [Concomitant]
     Dates: start: 20070901, end: 20070915
  12. LEXAPRO [Concomitant]
     Indication: NERVOUSNESS
     Dates: start: 20090601
  13. FISH OIL [Concomitant]
     Dates: start: 20080701
  14. SURFAK [Concomitant]
     Indication: LAXATIVE SUPPORTIVE CARE
     Dates: start: 19980501
  15. VITAMIN D [Concomitant]
     Dosage: DOSE:50000 UNIT(S)
     Dates: start: 20091201

REACTIONS (2)
  - FALL [None]
  - FEMUR FRACTURE [None]
